FAERS Safety Report 15930921 (Version 2)
Quarter: 2019Q1

REPORT INFORMATION
  Report Type: Report from Study
  Country: CN (occurrence: CN)
  Receive Date: 20190207
  Receipt Date: 20190301
  Transmission Date: 20190417
  Serious: Yes (Hospitalization)
  Sender: FDA-Public Use
  Company Number: CN-ROCHE-2251551

PATIENT
  Age: 39 Year
  Sex: Female
  Weight: 50 kg

DRUGS (3)
  1. PEMETREXED. [Suspect]
     Active Substance: PEMETREXED
     Indication: NON-SMALL CELL LUNG CANCER STAGE IV
     Dosage: FOR 4 OR 6 CYCLES (CYCLE LENGTH=21 DAYS)?DATE OF MOST RECENT DOSE OF PEMETREXED PRIOR TO AE ONSET: 0
     Route: 042
     Dates: start: 20180604
  2. ATEZOLIZUMAB. [Suspect]
     Active Substance: ATEZOLIZUMAB
     Indication: NON-SMALL CELL LUNG CANCER STAGE IV
     Dosage: OR 4 OR 6 CYCLES (CYCLE LENGTH=21 DAYS) (AS PER PROTOCOL)?DATE OF MOST RECENT DOSE OF ATEZOLIZUMAB T
     Route: 042
     Dates: start: 20180604
  3. CISPLATIN. [Suspect]
     Active Substance: CISPLATIN
     Indication: NON-SMALL CELL LUNG CANCER STAGE IV
     Dosage: FOR 4 OR 6 CYCLES (CYCLE LENGTH=21 DAYS)?DATE OF MOST RECENT DOSE OF CISPLATIN PRIOR TO AE ONSET: 19
     Route: 042
     Dates: start: 20180604

REACTIONS (1)
  - Lung infection [Recovered/Resolved]

NARRATIVE: CASE EVENT DATE: 20190120
